FAERS Safety Report 18193395 (Version 2)
Quarter: 2020Q4

REPORT INFORMATION
  Report Type: Report from Study
  Country: None (occurrence: US)
  Receive Date: 20200825
  Receipt Date: 20201019
  Transmission Date: 20210113
  Serious: Yes (Hospitalization, Other)
  Sender: FDA-Public Use
  Company Number: US-ABBVIE-20K-163-3532005-00

PATIENT
  Age: 65 Year
  Sex: Female
  Weight: 88.53 kg

DRUGS (2)
  1. POTASSIUM CITRATE. [Concomitant]
     Active Substance: POTASSIUM CITRATE
     Indication: NEPHROLITHIASIS
  2. HUMIRA [Suspect]
     Active Substance: ADALIMUMAB
     Indication: CROHN^S DISEASE
     Route: 058

REACTIONS (12)
  - Myocardial infarction [Unknown]
  - Gallbladder disorder [Unknown]
  - Hiatus hernia [Unknown]
  - Abdominal distension [Recovering/Resolving]
  - Crohn^s disease [Recovering/Resolving]
  - Dyspepsia [Unknown]
  - Gastrooesophageal reflux disease [Unknown]
  - Weight increased [Recovering/Resolving]
  - Abdominal pain upper [Recovering/Resolving]
  - Intestinal obstruction [Unknown]
  - Chest pain [Unknown]
  - Adhesion [Unknown]

NARRATIVE: CASE EVENT DATE: 202007
